FAERS Safety Report 5648422-5 (Version None)
Quarter: 2008Q1

REPORT INFORMATION
  Report Type: 
  Country: None (occurrence: None)
  Receive Date: 20080303
  Receipt Date: 20080303
  Transmission Date: 20080703
  Serious: Yes (Life-Threatening)
  Sender: FDA-Public Use
  Company Number: None

PATIENT
  Age: 73 Year
  Sex: Male

DRUGS (2)
  1. CISPLATIN [Suspect]
     Indication: SQUAMOUS CELL CARCINOMA
     Dosage: 90MG ONCE IV
     Route: 042
     Dates: start: 20071115, end: 20071115
  2. ETOPOSIDE [Suspect]
     Indication: SQUAMOUS CELL CARCINOMA
     Dosage: 90MG ONCE IV
     Route: 042
     Dates: start: 20071115, end: 20071115

REACTIONS (2)
  - ANAEMIA [None]
  - LEUKOPENIA [None]
